FAERS Safety Report 20096320 (Version 1)
Quarter: 2021Q4

REPORT INFORMATION
  Report Type: Spontaneous
  Country: US (occurrence: None)
  Receive Date: 20211119
  Receipt Date: 20211119
  Transmission Date: 20220303
  Serious: No
  Sender: FDA-Public Use
  Company Number: None

PATIENT
  Sex: Female
  Weight: 54 kg

DRUGS (1)
  1. DICLOFENAC SODIUM TOPICAL GEL 1% [Suspect]
     Active Substance: DICLOFENAC SODIUM
     Indication: Osteoarthritis
     Dosage: OTHER QUANTITY : 5.29 OUNCE(S);?FREQUENCY : 4 TIMES A DAY;?
     Route: 061
     Dates: start: 20211108, end: 20211119

REACTIONS (2)
  - Product substitution issue [None]
  - Drug ineffective [None]
